FAERS Safety Report 7768678-2 (Version None)
Quarter: 2011Q3

REPORT INFORMATION
  Report Type: 
  Country: None (occurrence: None)
  Receive Date: 20110922
  Receipt Date: 20110714
  Transmission Date: 20111222
  Serious: No
  Sender: FDA-Public Use
  Company Number: US-ASTRAZENECA-2011SE42288

PATIENT
  Age: 32 Year
  Sex: Male
  Weight: 81.6 kg

DRUGS (3)
  1. EFFEXOR [Concomitant]
  2. CLONAZEPAM [Concomitant]
  3. SEROQUEL XR [Suspect]
     Indication: BIPOLAR DISORDER
     Route: 048
     Dates: start: 20060101

REACTIONS (6)
  - ANXIETY [None]
  - WEIGHT INCREASED [None]
  - FRUSTRATION [None]
  - DRUG DOSE OMISSION [None]
  - INSOMNIA [None]
  - IRRITABILITY [None]
